FAERS Safety Report 10428260 (Version 2)
Quarter: 2014Q3

REPORT INFORMATION
  Report Type: Spontaneous
  Country: US (occurrence: US)
  Receive Date: 20140903
  Receipt Date: 20140903
  Transmission Date: 20150326
  Serious: No
  Sender: FDA-Public Use
  Company Number: US-ASTRAZENECA-2011SE08994

PATIENT
  Age: 79 Year
  Sex: Female
  Weight: 54.4 kg

DRUGS (6)
  1. UNSPECIFIED OVER-THE-COUNTER PILL [Concomitant]
     Indication: MULTIPLE ALLERGIES
  2. METHOTREXATE [Concomitant]
     Active Substance: METHOTREXATE
  3. BABY ASPIRIN [Concomitant]
     Active Substance: ASPIRIN
     Indication: PROPHYLAXIS
  4. NEXIUM [Suspect]
     Active Substance: ESOMEPRAZOLE MAGNESIUM
     Indication: GASTROOESOPHAGEAL REFLUX DISEASE
     Dosage: 2 CAPSULES DAILY
     Route: 048
  5. NEXIUM [Suspect]
     Active Substance: ESOMEPRAZOLE MAGNESIUM
     Indication: GASTROOESOPHAGEAL REFLUX DISEASE
     Route: 048
  6. UNKNOWN BLOOD PRESSURE PILL [Concomitant]

REACTIONS (8)
  - Cough [Recovered/Resolved]
  - Throat irritation [Recovering/Resolving]
  - Gastrooesophageal reflux disease [Recovering/Resolving]
  - Rheumatoid arthritis [Unknown]
  - Sinus disorder [Unknown]
  - Adverse event [Recovered/Resolved]
  - Vomiting [Recovered/Resolved]
  - Intentional product misuse [None]

NARRATIVE: CASE EVENT DATE: 2012
